FAERS Safety Report 7985516-3 (Version None)
Quarter: 2011Q4

REPORT INFORMATION
  Report Type: 
  Country: None (occurrence: None)
  Receive Date: 20111216
  Receipt Date: 20111214
  Transmission Date: 20120403
  Serious: Yes (Hospitalization, Other)
  Sender: FDA-Public Use
  Company Number: CA-ROCHE-GNE301848

PATIENT
  Sex: Female
  Weight: 97.104 kg

DRUGS (2)
  1. XOLAIR [Suspect]
     Route: 058
     Dates: start: 20111109
  2. XOLAIR [Suspect]
     Indication: ASTHMA
     Dosage: 300 MG, 1/MONTH
     Route: 058
     Dates: start: 20060524

REACTIONS (3)
  - HYPERSENSITIVITY [None]
  - ANAPHYLACTIC REACTION [None]
  - ASTHMA [None]
